FAERS Safety Report 8507265-5 (Version None)
Quarter: 2012Q3

REPORT INFORMATION
  Report Type: 
  Country: None (occurrence: None)
  Receive Date: 20120712
  Receipt Date: 20120704
  Transmission Date: 20120928
  Serious: Yes (Hospitalization, Other)
  Sender: FDA-Public Use
  Company Number: US-CELGENEUS-163-21880-12041180

PATIENT
  Sex: Male
  Weight: 60.7 kg

DRUGS (25)
  1. DEXAMETHASONE SODIUM POSPHATE [Suspect]
     Indication: MULTIPLE MYELOMA
     Dosage: 40 MILLIGRAM
     Route: 065
     Dates: start: 20110916, end: 20120131
  2. CARFILZOMIB [Suspect]
     Dosage: 33.4 MILLIGRAM
     Route: 065
     Dates: start: 20111020, end: 20111021
  3. CARFILZOMIB [Suspect]
     Dosage: 33.4 MILLIGRAM
     Route: 065
     Dates: start: 20120214, end: 20120229
  4. HYDROMORPHONE HCL [Concomitant]
     Indication: PAIN
     Dosage: 8 MILLIGRAM
     Route: 048
     Dates: start: 20110222
  5. LANSOPRAZOLE [Concomitant]
     Dosage: 15 MILLIGRAM
     Route: 048
     Dates: start: 20110914
  6. METHADONE HCL [Concomitant]
     Dosage: 30 MILLIGRAM
     Route: 048
  7. METHADONE HCL [Concomitant]
     Dosage: 45 MILLIGRAM
     Route: 048
     Dates: start: 20111013
  8. MIRALAX [Concomitant]
     Indication: CONSTIPATION
     Dosage: 217 GRAM
     Route: 048
  9. CARFILZOMIB [Suspect]
     Indication: MULTIPLE MYELOMA
     Dosage: 33.4 MILLIGRAM
     Route: 065
     Dates: start: 20110916
  10. CARFILZOMIB [Suspect]
     Dosage: 45 MILLIGRAM
     Route: 065
     Dates: start: 20111027, end: 20111214
  11. CARFILZOMIB [Suspect]
     Dosage: 45 MILLIGRAM
     Route: 065
     Dates: start: 20120110, end: 20120125
  12. SENNA-MINT WAF [Concomitant]
     Indication: CONSTIPATION
     Dosage: 8 TABLET
     Route: 048
  13. LACTULOSE [Concomitant]
     Indication: CONSTIPATION
     Route: 048
  14. MELATONIN [Concomitant]
     Indication: INSOMNIA
     Dosage: 20 MILLIGRAM
     Route: 048
  15. ASPIRIN [Concomitant]
     Indication: ANTIPLATELET THERAPY
  16. NORVASC [Concomitant]
     Indication: HYPERTENSION
     Dosage: 5 MILLIGRAM
     Route: 048
  17. ZOFRAN [Concomitant]
     Indication: ANTIVIRAL PROPHYLAXIS
     Dosage: 48 MILLIGRAM
     Route: 048
  18. CARFILZOMIB [Suspect]
     Dosage: 45 MILLIGRAM
     Route: 065
     Dates: start: 20110923
  19. CIPROFLOXACIN HCL [Concomitant]
     Indication: ANTIBIOTIC PROPHYLAXIS
     Dosage: 500 MILLIGRAM
     Route: 048
     Dates: start: 20110914
  20. ASPIRIN [Concomitant]
     Indication: ANTICOAGULANT THERAPY
     Dosage: 81 MILLIGRAM
     Route: 048
     Dates: start: 20110914
  21. CLONAZEPAM [Concomitant]
     Indication: ANXIETY
     Dosage: 50 MILLIGRAM
     Route: 048
     Dates: start: 20110608
  22. PROZAC [Concomitant]
     Indication: DEPRESSION
     Dosage: 20 MILLIGRAM
     Route: 048
     Dates: start: 20110624
  23. DILTIAZEM [Concomitant]
     Indication: HYPERTENSION
     Dosage: 360 MILLIGRAM
     Route: 048
  24. REVLIMID [Suspect]
     Indication: MULTIPLE MYELOMA
     Dosage: 25 MILLIGRAM
     Route: 048
     Dates: start: 20110916, end: 20120130
  25. VALACYCLOVIR HYDROCHLORIDE [Concomitant]
     Indication: ANTIVIRAL PROPHYLAXIS
     Dosage: 500 MILLIGRAM
     Route: 048
     Dates: start: 20110914

REACTIONS (1)
  - HEPATITIS C [None]
